FAERS Safety Report 9695529 (Version 1)
Quarter: 2013Q4

REPORT INFORMATION
  Report Type: Spontaneous
  Country: US (occurrence: None)
  Receive Date: 20131118
  Receipt Date: 20131118
  Transmission Date: 20140711
  Serious: Yes (Other)
  Sender: FDA-Public Use
  Company Number: None

PATIENT
  Age: 60 Year
  Sex: Female
  Weight: 86.6 kg

DRUGS (12)
  1. DAPTOMYCIN [Suspect]
     Indication: STAPHYLOCOCCAL BACTERAEMIA
     Route: 042
     Dates: start: 20131022, end: 20131023
  2. LINEZOLID [Concomitant]
  3. MERREM [Concomitant]
  4. FLAGYL [Concomitant]
  5. MICAFUNGIN [Concomitant]
  6. OXACILLIN [Concomitant]
  7. ZOSYN [Concomitant]
  8. RIFAMPIN [Concomitant]
  9. TYGACIL [Concomitant]
  10. VANCOMYCIN [Concomitant]
  11. ROCEPHINE [Concomitant]
  12. CIPRO [Concomitant]

REACTIONS (1)
  - Blood creatine phosphokinase increased [None]
